FAERS Safety Report 24369864 (Version 1)
Quarter: 2024Q3

REPORT INFORMATION
  Report Type: Spontaneous
  Country: US (occurrence: US)
  Receive Date: 20240927
  Receipt Date: 20240927
  Transmission Date: 20241017
  Serious: Yes (Other)
  Sender: Kilitch Healthcare
  Company Number: US-KHC-000102

PATIENT
  Sex: Male

DRUGS (1)
  1. CARBOXYMETHYLCELLULOSE [Suspect]
     Active Substance: CARBOXYMETHYLCELLULOSE
     Indication: Product used for unknown indication
     Route: 065
     Dates: start: 2023

REACTIONS (9)
  - Eye injury [Unknown]
  - Visual impairment [Unknown]
  - Vision blurred [Unknown]
  - Photophobia [Unknown]
  - Vitreous floaters [Unknown]
  - Infection [Unknown]
  - Eye discharge [Unknown]
  - Tunnel vision [Unknown]
  - Blindness [Unknown]

NARRATIVE: CASE EVENT DATE: 20230101
